FAERS Safety Report 8001403-9 (Version None)
Quarter: 2011Q4

REPORT INFORMATION
  Report Type: 
  Country: None (occurrence: None)
  Receive Date: 20111123
  Receipt Date: 20110912
  Transmission Date: 20120403
  Serious: No
  Sender: FDA-Public Use
  Company Number: 336514

PATIENT
  Sex: Male

DRUGS (1)
  1. VICTOZA [Suspect]
     Indication: PRODUCT USED FOR UNKNOWN INDICATION
     Dosage: , SUBCUTANEOUS
     Route: 058

REACTIONS (6)
  - DIARRHOEA [None]
  - DIZZINESS [None]
  - VOMITING [None]
  - MALAISE [None]
  - PYREXIA [None]
  - SLEEP DISORDER [None]
